FAERS Safety Report 19814288 (Version 1)
Quarter: 2021Q3

REPORT INFORMATION
  Report Type: Spontaneous
  Country: FR (occurrence: FR)
  Receive Date: 20210910
  Receipt Date: 20210910
  Transmission Date: 20211014
  Serious: Yes (Hospitalization)
  Sender: FDA-Public Use
  Company Number: FR-TEVA-2021-FR-1950270

PATIENT
  Age: 38 Year
  Sex: Female
  Weight: 108 kg

DRUGS (3)
  1. DUROGESIC 100 MICROGRAMMES/HEURE (16,8 MG/42 CM ), DISPOSITIF TRANSDER [Suspect]
     Active Substance: FENTANYL
     Dosage: 1 PATCH EVERY 48 HOURS, 1 DF
     Route: 062
     Dates: start: 2009, end: 20210712
  2. ACTIQ [Suspect]
     Active Substance: FENTANYL CITRATE
     Indication: PRODUCT USED FOR UNKNOWN INDICATION
     Dosage: 11200 MCG
     Route: 062
     Dates: start: 20090101, end: 20210712
  3. DUROGESIC 100 MICROGRAMMES/HEURE (16,8 MG/42 CM ), DISPOSITIF TRANSDER [Suspect]
     Active Substance: FENTANYL
     Dosage: 1 PATCH SUCKED PUNCTUALLY, 1 DF
     Route: 062
     Dates: start: 200908, end: 20210712

REACTIONS (4)
  - Behaviour disorder [Recovering/Resolving]
  - Drug abuse [Recovering/Resolving]
  - Drug dependence [Recovering/Resolving]
  - Withdrawal syndrome [Recovering/Resolving]

NARRATIVE: CASE EVENT DATE: 20090101
